FAERS Safety Report 5562825-9 (Version None)
Quarter: 2007Q4

REPORT INFORMATION
  Report Type: 
  Country: None (occurrence: None)
  Receive Date: 20071217
  Receipt Date: 20071130
  Transmission Date: 20080405
  Serious: Yes (Hospitalization)
  Sender: FDA-Public Use
  Company Number: PHBS2007ES20229

PATIENT
  Age: 58 Year
  Sex: Male

DRUGS (1)
  1. SANDOSTATIN LAR [Suspect]
     Indication: PROPHYLAXIS
     Dosage: 10 MG, TID
     Route: 058
     Dates: start: 20070301, end: 20070303

REACTIONS (2)
  - BRADYCARDIA [None]
  - BUNDLE BRANCH BLOCK RIGHT [None]
